FAERS Safety Report 11722847 (Version 2)
Quarter: 2015Q4

REPORT INFORMATION
  Report Type: Spontaneous
  Country: JP (occurrence: JP)
  Receive Date: 20151111
  Receipt Date: 20151209
  Transmission Date: 20160304
  Serious: Yes (Hospitalization, Other)
  Sender: FDA-Public Use
  Company Number: JP-BRISTOL-MYERS SQUIBB COMPANY-BMS-2015-075912

PATIENT
  Age: 69 Year
  Sex: Male

DRUGS (1)
  1. KENACORT-A [Suspect]
     Active Substance: TRIAMCINOLONE
     Indication: NEURODERMATITIS
     Dosage: 40 MG, UNK
     Route: 061
     Dates: start: 201404, end: 20150409

REACTIONS (3)
  - Abdominal pain [Unknown]
  - Diabetic ketoacidosis [Unknown]
  - Thirst [Unknown]
